FAERS Safety Report 6142520-8 (Version None)
Quarter: 2009Q2

REPORT INFORMATION
  Report Type: 
  Country: None (occurrence: None)
  Receive Date: 20090403
  Receipt Date: 20090324
  Transmission Date: 20091009
  Serious: Yes (Other)
  Sender: FDA-Public Use
  Company Number: CA-PFIZER INC-2006055414

PATIENT

DRUGS (13)
  1. SUNITINIB MALATE [Suspect]
     Indication: RENAL CELL CARCINOMA
     Dosage: DAILY FOR 4 WEEKS, 2 WEEKS OFF
     Route: 048
     Dates: start: 20060111, end: 20060322
  2. HYDROMORPHONE HYDROCHLORIDE [Concomitant]
     Route: 048
     Dates: start: 20050701
  3. GABAPENTIN [Concomitant]
     Route: 048
     Dates: start: 20050701
  4. DOCUSATE SODIUM [Concomitant]
     Route: 048
     Dates: start: 20051001
  5. SODIUM POLYSTYRENE SULFONATE [Concomitant]
     Route: 048
     Dates: start: 20051101
  6. NIFEDIPINE [Concomitant]
     Route: 048
     Dates: start: 20050101, end: 20060323
  7. CANDESARTAN CILEXETIL [Concomitant]
     Route: 048
     Dates: start: 20010101
  8. PRAVASTATIN SODIUM [Concomitant]
     Route: 048
     Dates: start: 19980101
  9. MULTI-VITAMINS [Concomitant]
     Route: 048
     Dates: start: 20030101
  10. EPOETIN ALFA [Concomitant]
     Route: 058
     Dates: start: 19980101
  11. SEVELAMER HYDROCHLORIDE [Concomitant]
     Route: 048
     Dates: start: 20050701
  12. LORAZEPAM [Concomitant]
     Route: 048
     Dates: start: 20050701
  13. PANTOPRAZOLE SODIUM [Concomitant]
     Route: 048
     Dates: start: 20051101

REACTIONS (1)
  - BUDD-CHIARI SYNDROME [None]
